FAERS Safety Report 6565830-9 (Version None)
Quarter: 2010Q1

REPORT INFORMATION
  Report Type: 
  Country: None (occurrence: None)
  Receive Date: 20100201
  Receipt Date: 20090810
  Transmission Date: 20100710
  Serious: No
  Sender: FDA-Public Use
  Company Number: US-ABBOTT-09P-163-0590562-00

PATIENT
  Sex: Male

DRUGS (2)
  1. LUPRON DEPOT [Suspect]
     Indication: PROSTATE CANCER
     Dates: start: 20090401, end: 20090401
  2. LUPRON DEPOT [Suspect]
     Dosage: THEN 7.5 EACH MONTH X 3
     Dates: start: 20090501, end: 20090701

REACTIONS (1)
  - INCORRECT DOSE ADMINISTERED [None]
